FAERS Safety Report 12094920 (Version 3)
Quarter: 2016Q3

REPORT INFORMATION
  Report Type: Spontaneous
  Country: US (occurrence: US)
  Receive Date: 20160219
  Receipt Date: 20160826
  Transmission Date: 20161109
  Serious: Yes (Death, Hospitalization)
  Sender: FDA-Public Use
  Company Number: US-JNJFOC-20160217446

PATIENT
  Age: 49 Year
  Sex: Female

DRUGS (4)
  1. XARELTO [Suspect]
     Active Substance: RIVAROXABAN
     Indication: THROMBOSIS
     Dosage: 10-20 MG APPROXIAMTELY.
     Route: 048
     Dates: start: 20150517, end: 20150521
  2. COUMADIN [Concomitant]
     Active Substance: WARFARIN SODIUM
     Indication: SKIN ULCER
     Route: 065
  3. XARELTO [Suspect]
     Active Substance: RIVAROXABAN
     Indication: DEEP VEIN THROMBOSIS
     Dosage: 10-20 MG APPROXIAMTELY.
     Route: 048
     Dates: start: 20150517, end: 20150521
  4. COUMADIN [Concomitant]
     Active Substance: WARFARIN SODIUM
     Indication: DEEP VEIN THROMBOSIS
     Route: 065

REACTIONS (3)
  - Peritoneal haemorrhage [Fatal]
  - Muscle haemorrhage [Fatal]
  - Haematochezia [Fatal]

NARRATIVE: CASE EVENT DATE: 201505
